FAERS Safety Report 20393719 (Version 2)
Quarter: 2022Q1

REPORT INFORMATION
  Report Type: Spontaneous
  Country: US (occurrence: US)
  Receive Date: 20220128
  Receipt Date: 20220209
  Transmission Date: 20220423
  Serious: Yes (Other)
  Sender: FDA-Public Use
  Company Number: US-009507513-2201USA007847

PATIENT
  Age: 78 Year
  Sex: Male
  Weight: 81 kg

DRUGS (7)
  1. TEMODAR [Suspect]
     Active Substance: TEMOZOLOMIDE
     Dosage: UNK
     Dates: start: 2016, end: 2018
  2. LUTATHERA [Suspect]
     Active Substance: LUTETIUM OXODOTREOTIDE LU-177
  3. EVEROLIMUS [Suspect]
     Active Substance: EVEROLIMUS
     Dosage: UNK
     Dates: start: 201402, end: 201612
  4. CAPECITABINE [Suspect]
     Active Substance: CAPECITABINE
     Indication: Pancreatic carcinoma
     Dosage: 500 MG (MILLIGRAM) 2 TABS DAILY
     Route: 048
  5. SERTRALINE [Concomitant]
     Active Substance: SERTRALINE HYDROCHLORIDE
     Dosage: 100 MG
     Route: 048
  6. LOSARTAN [Concomitant]
     Active Substance: LOSARTAN
     Dosage: 50 MG
     Route: 048
  7. PREVACID [Concomitant]
     Active Substance: LANSOPRAZOLE
     Dosage: 15 MG ONCE A DAY
     Route: 048

REACTIONS (26)
  - Malignant neoplasm progression [Unknown]
  - Pancreatic neuroendocrine tumour metastatic [Unknown]
  - Metastases to liver [Unknown]
  - Biliary dilatation [Unknown]
  - Metastases to bone [Unknown]
  - Ill-defined disorder [Unknown]
  - Blood gastrin increased [Unknown]
  - Inguinal mass [Unknown]
  - Dysarthria [Recovered/Resolved]
  - Hepatomegaly [Unknown]
  - Blood calcium increased [Unknown]
  - Blood chloride increased [Unknown]
  - Glomerular filtration rate decreased [Unknown]
  - Eosinophil percentage increased [Unknown]
  - Eosinophil count increased [Unknown]
  - Aspartate aminotransferase increased [Unknown]
  - Dyspepsia [Unknown]
  - Gait disturbance [Recovered/Resolved]
  - Alanine aminotransferase increased [Unknown]
  - Blood alkaline phosphatase increased [Unknown]
  - Blood bilirubin increased [Unknown]
  - Blood glucose increased [Unknown]
  - Dyspnoea [Unknown]
  - Fatigue [Unknown]
  - Decreased appetite [Unknown]
  - Diarrhoea [Unknown]

NARRATIVE: CASE EVENT DATE: 20190212
